FAERS Safety Report 21740225 (Version 1)
Quarter: 2022Q4

REPORT INFORMATION
  Report Type: Spontaneous
  Country: IL (occurrence: IL)
  Receive Date: 20221216
  Receipt Date: 20221216
  Transmission Date: 20230113
  Serious: Yes (Death, Life-Threatening, Hospitalization, Other)
  Sender: FDA-Public Use
  Company Number: IL-009507513-2212ISR004658

PATIENT
  Age: 63 Year
  Sex: Male

DRUGS (1)
  1. BCG LIVE [Suspect]
     Active Substance: BACILLUS CALMETTE-GUERIN SUBSTRAIN TICE LIVE ANTIGEN
     Indication: Transitional cell carcinoma
     Dosage: SIX COURSES
     Dates: start: 2019, end: 2019

REACTIONS (2)
  - Haemophagocytic lymphohistiocytosis [Fatal]
  - Central nervous system vasculitis [Recovering/Resolving]
